FAERS Safety Report 4620160-7 (Version None)
Quarter: 2005Q1

REPORT INFORMATION
  Report Type: 
  Country: None (occurrence: None)
  Receive Date: 20050324
  Receipt Date: 20050317
  Transmission Date: 20050727
  Serious: Yes (Death)
  Sender: FDA-Public Use
  Company Number: AU-2005-004025

PATIENT
  Age: 38 Year
  Sex: Female
  Weight: 80 kg

DRUGS (3)
  1. YASMIN [Suspect]
     Indication: ORAL CONTRACEPTION
     Dosage: ORAL
     Route: 048
     Dates: start: 20040701, end: 20040901
  2. SIMBICORT ASTHMA PUFFER [Concomitant]
  3. ERYTHROMYCIN [Concomitant]

REACTIONS (3)
  - CIRCULATORY COLLAPSE [None]
  - PULMONARY EMBOLISM [None]
  - RASH [None]
